FAERS Safety Report 9704689 (Version 2)
Quarter: 2013Q4

REPORT INFORMATION
  Report Type: Report from Study
  Country: US (occurrence: US)
  Receive Date: 20131122
  Receipt Date: 20131220
  Transmission Date: 20140711
  Serious: Yes (Other)
  Sender: FDA-Public Use
  Company Number: US-ROCHE-1303196

PATIENT
  Age: 13 Year
  Sex: Male
  Weight: 31.1 kg

DRUGS (2)
  1. NUTROPIN AQ [Suspect]
     Indication: GROWTH HORMONE DEFICIENCY
     Route: 058
     Dates: start: 20121208, end: 20130110
  2. NUTROPIN AQ [Suspect]
     Dosage: RESTARTED
     Route: 065

REACTIONS (3)
  - Purpura [Unknown]
  - Haemorrhage [Unknown]
  - Injection site haemorrhage [Not Recovered/Not Resolved]
